FAERS Safety Report 21098922 (Version 1)
Quarter: 2022Q3

REPORT INFORMATION
  Report Type: Spontaneous
  Country: US (occurrence: None)
  Receive Date: 20220718
  Receipt Date: 20220718
  Transmission Date: 20221027
  Serious: Yes (Other)
  Sender: FDA-Public Use
  Company Number: None

PATIENT
  Age: 65 Year
  Sex: Male
  Weight: 63 kg

DRUGS (8)
  1. NEXLIZET [Suspect]
     Active Substance: BEMPEDOIC ACID\EZETIMIBE
     Indication: Low density lipoprotein increased
     Dosage: FREQUENCY : AT BEDTIME;?
     Route: 048
     Dates: start: 20220623, end: 20220712
  2. ENALAPRIL [Concomitant]
     Active Substance: ENALAPRIL
  3. CLOPIDOGREL [Concomitant]
     Active Substance: CLOPIDOGREL BISULFATE
  4. Lovaza (generic) [Concomitant]
  5. heart stents [Concomitant]
  6. Vit K2 (MK7) [Concomitant]
  7. VITAMIN D3 [Concomitant]
     Active Substance: CHOLECALCIFEROL
  8. MAGNESIUM [Concomitant]
     Active Substance: MAGNESIUM

REACTIONS (3)
  - Gastrooesophageal reflux disease [None]
  - Oesophageal spasm [None]
  - Choking [None]

NARRATIVE: CASE EVENT DATE: 20220712
